FAERS Safety Report 9901277 (Version 1)
Quarter: 2014Q1

REPORT INFORMATION
  Report Type: Report from Study
  Country: IT (occurrence: IT)
  Receive Date: 20140217
  Receipt Date: 20140217
  Transmission Date: 20141002
  Serious: Yes (Life-Threatening, Hospitalization, Other)
  Sender: FDA-Public Use
  Company Number: DE-ASTRAZENECA-2014SE10967

PATIENT
  Age: 38 Year
  Sex: Male

DRUGS (4)
  1. TICAGRELOR [Suspect]
     Indication: ACUTE CORONARY SYNDROME
     Route: 048
     Dates: start: 20131018
  2. ASA [Suspect]
     Indication: ACUTE CORONARY SYNDROME
     Route: 048
     Dates: start: 20131018, end: 20131018
  3. BIVALIRUDIN [Concomitant]
     Dosage: 0.25 MG/KG/H
  4. FLECTADOL [Concomitant]
     Dosage: 1000 MG
     Route: 042

REACTIONS (1)
  - Acute myocardial infarction [Recovered/Resolved with Sequelae]
